FAERS Safety Report 8158984-4 (Version None)
Quarter: 2012Q1

REPORT INFORMATION
  Report Type: 
  Country: None (occurrence: None)
  Receive Date: 20120223
  Receipt Date: 20120217
  Transmission Date: 20120608
  Serious: No
  Sender: FDA-Public Use
  Company Number: US-PFIZER INC-2012043508

PATIENT
  Sex: Female

DRUGS (4)
  1. TOPAMAX [Suspect]
     Dosage: UNK
  2. ZOMIG [Interacting]
     Indication: MIGRAINE
     Dosage: UNK
  3. PRISTIQ [Interacting]
     Indication: DEPRESSION
  4. PRISTIQ [Interacting]
     Indication: ANXIETY
     Dosage: UNK

REACTIONS (2)
  - DRUG INTERACTION [None]
  - MIGRAINE [None]
